FAERS Safety Report 21530560 (Version 1)
Quarter: 2022Q4

REPORT INFORMATION
  Report Type: Spontaneous
  Country: US (occurrence: None)
  Receive Date: 20221029
  Receipt Date: 20221029
  Transmission Date: 20230113
  Serious: Yes (Disabling, Other)
  Sender: FDA-Public Use
  Company Number: None

PATIENT
  Age: 36 Year
  Sex: Female
  Weight: 102.15 kg

DRUGS (1)
  1. SAXENDA [Suspect]
     Active Substance: LIRAGLUTIDE
     Indication: Weight decreased
     Dates: start: 20220924, end: 20221026

REACTIONS (5)
  - Throat tightness [None]
  - Fatigue [None]
  - Diplopia [None]
  - Presyncope [None]
  - Dizziness [None]

NARRATIVE: CASE EVENT DATE: 20221026
